FAERS Safety Report 15932088 (Version 2)
Quarter: 2019Q1

REPORT INFORMATION
  Report Type: Spontaneous
  Country: US (occurrence: US)
  Receive Date: 20190207
  Receipt Date: 20190227
  Transmission Date: 20190417
  Serious: No
  Sender: FDA-Public Use
  Company Number: US-PFIZER INC-2019049350

PATIENT
  Sex: Female

DRUGS (1)
  1. AMLODIPINE BESILATE [Suspect]
     Active Substance: AMLODIPINE BESYLATE
     Dosage: 10 MG, UNK

REACTIONS (16)
  - Asthenia [Unknown]
  - Drug hypersensitivity [Unknown]
  - Micturition urgency [Unknown]
  - Insomnia [Unknown]
  - Nausea [Unknown]
  - Decreased appetite [Unknown]
  - Drug intolerance [Unknown]
  - Dry mouth [Unknown]
  - Feeding disorder [Unknown]
  - Dizziness [Unknown]
  - Hypertension [Unknown]
  - Intentional product misuse [Unknown]
  - Malaise [Unknown]
  - Nocturia [Unknown]
  - Headache [Unknown]
  - Urinary incontinence [Unknown]
